FAERS Safety Report 19829526 (Version 1)
Quarter: 2021Q3

REPORT INFORMATION
  Report Type: Spontaneous
  Country: GB (occurrence: GB)
  Receive Date: 20210914
  Receipt Date: 20210914
  Transmission Date: 20211014
  Serious: Yes (Other)
  Sender: FDA-Public Use
  Company Number: GB-MYLANLABS-2021M1061603

PATIENT
  Age: 31 Year
  Sex: Female

DRUGS (11)
  1. CEFALEXIN [Suspect]
     Active Substance: CEPHALEXIN
     Indication: PRODUCT USED FOR UNKNOWN INDICATION
     Dosage: 500 MILLIGRAM, TID
     Route: 048
     Dates: start: 20210907, end: 20210907
  2. MORPHINE SULFATE. [Concomitant]
     Active Substance: MORPHINE SULFATE
     Dosage: 10 MILLIGRAM, Q3H
     Route: 030
     Dates: start: 20210907
  3. ONDANSETRON [Concomitant]
     Active Substance: ONDANSETRON
     Dosage: 4 MILLIGRAM, Q6H
     Route: 042
     Dates: start: 20210906
  4. SALBUTAMOL [Concomitant]
     Active Substance: ALBUTEROL
     Dosage: 2 DOSAGE FORM (2 PUFFS)
     Route: 055
     Dates: start: 20210907
  5. CHLORPHENAMINE [Concomitant]
     Active Substance: CHLORPHENIRAMINE MALEATE
     Dosage: 4 MILLIGRAM, QID
     Route: 048
     Dates: start: 20210907
  6. PROCHLORPERAZINE. [Concomitant]
     Active Substance: PROCHLORPERAZINE
     Dosage: 12.5 MILLIGRAM, TOTAL (ONCE ONLY)
     Route: 030
     Dates: start: 20210906, end: 20210906
  7. TRAMADOL. [Concomitant]
     Active Substance: TRAMADOL
     Dosage: 100 MILLIGRAM, QID
     Route: 048
     Dates: start: 20210906
  8. IBUPROFEN. [Suspect]
     Active Substance: IBUPROFEN
     Indication: PRODUCT USED FOR UNKNOWN INDICATION
     Dosage: 400 MILLIGRAM, TID
     Route: 048
     Dates: start: 20210907, end: 20210907
  9. MORPHINE [Concomitant]
     Active Substance: MORPHINE
     Dosage: 10 MILLIGRAM, ONCE (ONCE ONLY)
     Route: 030
     Dates: start: 20210906, end: 20210906
  10. PARACETAMOL [Concomitant]
     Active Substance: ACETAMINOPHEN
     Dosage: 1000 MILLIGRAM, QID
     Route: 048
     Dates: start: 20210906
  11. CODEINE [Concomitant]
     Active Substance: CODEINE
     Dosage: 60 MILLIGRAM, QID (60 MG FOUR TIMES A DAY ORAL)
     Route: 048
     Dates: start: 20210906

REACTIONS (4)
  - Rash [Recovering/Resolving]
  - Wheezing [Recovering/Resolving]
  - Pruritus [Recovering/Resolving]
  - Maternal exposure during pregnancy [Unknown]
